FAERS Safety Report 22331073 (Version 1)
Quarter: 2023Q2

REPORT INFORMATION
  Report Type: Report from Study
  Country: US (occurrence: None)
  Receive Date: 20230517
  Receipt Date: 20230517
  Transmission Date: 20230721
  Serious: Yes (Hospitalization)
  Sender: FDA-Public Use
  Company Number: US-ROCHE-3349503

PATIENT

DRUGS (8)
  1. RITUXIMAB [Suspect]
     Active Substance: RITUXIMAB
     Indication: Burkitt^s lymphoma
     Dosage: SUBSEQUENT DOSES ON 05/JUL/2013, 26/JUL/2013, 16/AUG/2013
     Route: 041
     Dates: start: 20130615
  2. VINCRISTINE [Suspect]
     Active Substance: VINCRISTINE
     Indication: Burkitt^s lymphoma
     Dosage: SUBSEQUENT DOSES ON 05/JUL/2013, 26/JUL/2013, 16/AUG/2013
     Route: 042
     Dates: start: 20130615
  3. DOXORUBICIN [Suspect]
     Active Substance: DOXORUBICIN
     Indication: Burkitt^s lymphoma
     Dosage: SUBSEQUENT DOSES ON 05/JUL/2013, 26/JUL/2013, 16/AUG/2013
     Route: 042
     Dates: start: 20130615
  4. ETOPOSIDE [Suspect]
     Active Substance: ETOPOSIDE
     Indication: Burkitt^s lymphoma
     Dosage: SUBSEQUENT DOSES ON 05/JUL/2013, 26/JUL/2013, 16/AUG/2013
     Route: 042
     Dates: start: 20130615
  5. FILGRASTIM [Suspect]
     Active Substance: FILGRASTIM
     Indication: Burkitt^s lymphoma
     Dosage: SUBSEQUENT DOSES ON 20/JUN/2013, 01/JUL/2013, 10/JUL/2013
     Route: 065
     Dates: start: 20130610
  6. PREDNISONE [Suspect]
     Active Substance: PREDNISONE
     Indication: Burkitt^s lymphoma
     Dosage: SUBSEQUENT DOSES ON 05/JUL/2013, 26/JUL/2013, 16/AUG/2013
     Route: 042
     Dates: start: 20130615
  7. CYCLOPHOSPHAMIDE [Suspect]
     Active Substance: CYCLOPHOSPHAMIDE
     Indication: Burkitt^s lymphoma
     Dosage: SUBSEQUENT DOSES ON 09/JUL/2013, 30/JUL/2013, 20/AUG/2013
     Route: 042
     Dates: start: 20130619
  8. METHOTREXATE [Suspect]
     Active Substance: METHOTREXATE
     Indication: Burkitt^s lymphoma
     Dosage: SUBSEQUENT DOSES ON 30/JUL/2013, 16/AUG/2013, 20/AUG/2013
     Route: 065
     Dates: start: 20130726

REACTIONS (1)
  - Acute kidney injury [Recovered/Resolved]

NARRATIVE: CASE EVENT DATE: 20130826
